FAERS Safety Report 13062607 (Version 3)
Quarter: 2017Q1

REPORT INFORMATION
  Report Type: Spontaneous
  Country: US (occurrence: US)
  Receive Date: 20161226
  Receipt Date: 20170303
  Transmission Date: 20170428
  Serious: Yes (Other)
  Sender: FDA-Public Use
  Company Number: US-SHIRE-US201620005

PATIENT
  Age: 94 Year
  Sex: Female

DRUGS (1)
  1. XIIDRA [Suspect]
     Active Substance: LIFITEGRAST
     Indication: PRODUCT USED FOR UNKNOWN INDICATION
     Dosage: 1 GTT, (BOTH EYES) 2X/DAY:BID
     Route: 047
     Dates: start: 20161201, end: 201612

REACTIONS (9)
  - Seizure [Unknown]
  - Instillation site swelling [Unknown]
  - Drug ineffective [Recovered/Resolved]
  - Lacrimation increased [Unknown]
  - Ocular hyperaemia [Unknown]
  - Instillation site reaction [Unknown]
  - Photophobia [Unknown]
  - Eye pruritus [Unknown]
  - Eye pain [Not Recovered/Not Resolved]

NARRATIVE: CASE EVENT DATE: 201612
